FAERS Safety Report 25861863 (Version 2)
Quarter: 2025Q4

REPORT INFORMATION
  Report Type: Spontaneous
  Country: EU (occurrence: EU)
  Receive Date: 20250930
  Receipt Date: 20251029
  Transmission Date: 20260118
  Serious: Yes (Hospitalization)
  Sender: CSL BEHRING
  Company Number: EU-BEH-2025219926

PATIENT
  Age: 71 Year
  Sex: Male

DRUGS (14)
  1. HAEMATE P [Suspect]
     Active Substance: ANTIHEMOPHILIC FACTOR HUMAN
     Indication: Von Willebrand^s disease
     Dosage: UNK
     Route: 065
     Dates: start: 20250827, end: 20250827
  2. TOUJEO [Concomitant]
     Active Substance: INSULIN GLARGINE
     Dosage: 12 IU IN THE EVENING
  3. BIKTARVY [Concomitant]
     Active Substance: BICTEGRAVIR SODIUM\EMTRICITABINE\TENOFOVIR ALAFENAMIDE FUMARATE
     Dosage: 1 TABLET/DAY,
  4. ESOMEPRAZOLE [Concomitant]
     Active Substance: ESOMEPRAZOLE
     Dosage: 40 MG, BID (1 TABLET IN THE MORNING AND EVENING)
  5. Hepilor [Concomitant]
     Dosage: 10 ML, 1 SACHET X 2
  6. CARVEDILOL [Concomitant]
     Active Substance: CARVEDILOL
     Dosage: 6.25 MG, ? TABLET IN THE MORNING + 1 TABLET IN EVENING
  7. Folina [Concomitant]
     Dosage: UNK, QD
  8. ROSUVASTATIN [Concomitant]
     Active Substance: ROSUVASTATIN
     Dosage: 20 MG 1 TABLET/DAY
  9. CANRENOATE POTASSIUM [Concomitant]
     Active Substance: CANRENOATE POTASSIUM
     Dosage: 100 1 TABLET/DAY
  10. LASIX [Concomitant]
     Active Substance: FUROSEMIDE
     Dosage: 25 MG 1 TABLET
  11. CHOLECALCIFEROL [Concomitant]
     Active Substance: CHOLECALCIFEROL
     Dosage: 30 DROPS ONCE A WEEK
  12. AMLODIPINE [Concomitant]
     Active Substance: AMLODIPINE BESYLATE
     Dosage: 10 MG, BID
  13. POLYETHYLENE GLYCOLS [Concomitant]
     Active Substance: POLYETHYLENE GLYCOLS
     Dosage: UNK, PRN
  14. TRANEXAMIC ACID [Concomitant]
     Active Substance: TRANEXAMIC ACID
     Dosage: 500 MG X2

REACTIONS (2)
  - Myocardial infarction [Recovered/Resolved]
  - Circulatory collapse [Recovered/Resolved]

NARRATIVE: CASE EVENT DATE: 20250801
